FAERS Safety Report 10574538 (Version 1)
Quarter: 2014Q4

REPORT INFORMATION
  Report Type: Spontaneous
  Country: US (occurrence: US)
  Receive Date: 20141110
  Receipt Date: 20141110
  Transmission Date: 20150529
  Serious: Yes (Hospitalization)
  Sender: FDA-Public Use
  Company Number: US-TARO-2014TAR00533

PATIENT
  Age: 68 Year
  Sex: Female
  Weight: 109.75 kg

DRUGS (9)
  1. WARFARIN SODIUM TABLETS USP 4MG [Suspect]
     Active Substance: WARFARIN SODIUM
     Dosage: UNK
     Route: 048
  2. METFORMIN [Concomitant]
     Active Substance: METFORMIN HYDROCHLORIDE
     Dosage: 1000 MG, 2X/DAY
     Route: 048
  3. OXYCODONE 50 MG [Concomitant]
     Dosage: 50 MG, AS NEEDED
     Route: 048
  4. ZANTAC [Concomitant]
     Active Substance: RANITIDINE HYDROCHLORIDE
     Dosage: 75 MG, 2X/DAY
     Route: 048
  5. LISINOPRIL. [Concomitant]
     Active Substance: LISINOPRIL
     Dosage: 20 MG, 2X/DAY
  6. GLIPIZIDE ER [Concomitant]
     Active Substance: GLIPIZIDE
     Dosage: 2.5 MG, 2X/DAY
     Route: 048
  7. WARFARIN SODIUM TABLETS USP 5MG [Suspect]
     Active Substance: WARFARIN SODIUM
     Dosage: UNK
     Route: 048
  8. METOPROLOL TARTRATE 50 MG [Concomitant]
     Dosage: 50 MG, 2X/DAY
     Route: 048
  9. HYDROCORTISONE 25 MG [Concomitant]
     Dosage: 25 MG, 1X/DAY
     Route: 048

REACTIONS (2)
  - Renal haemorrhage [Unknown]
  - Renal failure [Unknown]
